FAERS Safety Report 18546135 (Version 1)
Quarter: 2020Q4

REPORT INFORMATION
  Report Type: Spontaneous
  Country: ES (occurrence: ES)
  Receive Date: 20201125
  Receipt Date: 20201125
  Transmission Date: 20210114
  Serious: Yes (Hospitalization)
  Sender: FDA-Public Use
  Company Number: ES-TEVA-2020-ES-1851976

PATIENT
  Age: 90 Year
  Sex: Female

DRUGS (1)
  1. AMLODIPINO/ VALSARTAN/ HIDROCLOROTIAZIDA 10MG/160MG/12,5MG [Suspect]
     Active Substance: AMLODIPINE\HYDROCHLOROTHIAZIDE\VALSARTAN
     Dosage: 1 DOSAGE FORMS DAILY; AT BREAKFAST
     Route: 048
     Dates: start: 20191111, end: 20201028

REACTIONS (3)
  - Dizziness [Recovered/Resolved]
  - Balance disorder [Recovered/Resolved]
  - Hyponatraemia [Recovered/Resolved]

NARRATIVE: CASE EVENT DATE: 202010
